FAERS Safety Report 17048818 (Version 4)
Quarter: 2020Q1

REPORT INFORMATION
  Report Type: Not Available
  Country: US (occurrence: US)
  Receive Date: 20191119
  Receipt Date: 20200116
  Transmission Date: 20200409
  Serious: Yes (Hospitalization)
  Sender: FDA-Public Use
  Company Number: US-NEUROCRINE BIOSCIENCES INC.-2019NBI03398

PATIENT
  Age: 75 Year
  Sex: Male

DRUGS (2)
  1. INGREZZA [Suspect]
     Active Substance: VALBENAZINE
     Route: 048
     Dates: start: 20181220
  2. INGREZZA [Suspect]
     Active Substance: VALBENAZINE
     Indication: TARDIVE DYSKINESIA
     Route: 048
     Dates: start: 20181212, end: 20181219

REACTIONS (4)
  - Muscular weakness [Unknown]
  - Pneumonia fungal [Unknown]
  - Hallucination [Unknown]
  - Tremor [Unknown]

NARRATIVE: CASE EVENT DATE: 20191021
